FAERS Safety Report 8764934 (Version 2)
Quarter: 2012Q4

REPORT INFORMATION
  Report Type: 
  Country: JP (occurrence: JP)
  Receive Date: 20120902
  Receipt Date: 20121003
  Transmission Date: 20130627
  Serious: Yes (Hospitalization)
  Sender: FDA-Public Use
  Company Number: JP-MYLANLABS-2012S1017315

PATIENT
  Age: 56 Year
  Sex: Male
  Weight: 48 kg

DRUGS (5)
  1. EPIRUBICIN [Suspect]
     Indication: BREAST CANCER MALE
     Route: 041
     Dates: start: 20120525, end: 20120705
  2. ENDOXAN [Suspect]
     Indication: BREAST CANCER MALE
     Route: 041
     Dates: start: 20120525, end: 20120705
  3. TAMSULOSIN HYDROCHLORIDE [Concomitant]
     Indication: BENIGN PROSTATIC HYPERPLASIA
     Route: 048
  4. AVOLVE [Concomitant]
     Indication: BENIGN PROSTATIC HYPERPLASIA
     Route: 048
  5. FAMOTIDINE [Concomitant]
     Indication: GASTRITIS PROPHYLAXIS
     Route: 048

REACTIONS (1)
  - Interstitial lung disease [Recovering/Resolving]
